FAERS Safety Report 4649278-X (Version None)
Quarter: 2005Q2

REPORT INFORMATION
  Report Type: 
  Country: None (occurrence: None)
  Receive Date: 20050429
  Receipt Date: 20050406
  Transmission Date: 20051028
  Serious: Yes (Hospitalization)
  Sender: FDA-Public Use
  Company Number: US-MERCK-0504USA00738

PATIENT
  Sex: Male

DRUGS (13)
  1. VIOXX [Suspect]
     Route: 048
  2. LANTUS [Suspect]
     Route: 065
  3. INSULIN [Suspect]
     Route: 065
  4. PROVENTIL [Concomitant]
     Route: 065
  5. ZOCOR [Concomitant]
     Route: 065
  6. SYNTHROID [Concomitant]
     Route: 065
  7. ACTOS [Concomitant]
     Route: 065
  8. ZESTRIL [Concomitant]
     Route: 065
  9. PLAVIX [Concomitant]
     Route: 065
  10. AMARYL [Concomitant]
     Route: 065
  11. LEVAQUIN [Concomitant]
     Route: 065
  12. NAMENDA [Concomitant]
     Route: 065
  13. INSULIN [Concomitant]
     Route: 065

REACTIONS (12)
  - ARTHROPATHY [None]
  - BLOOD GLUCOSE INCREASED [None]
  - CARDIAC VALVE DISEASE [None]
  - CEREBROVASCULAR ACCIDENT [None]
  - DISEASE RECURRENCE [None]
  - INFECTION [None]
  - MEDICAL DEVICE COMPLICATION [None]
  - PYREXIA [None]
  - TONGUE DISORDER [None]
  - VIRAL INFECTION [None]
  - VISUAL DISTURBANCE [None]
  - VOMITING [None]
